FAERS Safety Report 23706372 (Version 1)
Quarter: 2024Q2

REPORT INFORMATION
  Report Type: Spontaneous
  Country: US (occurrence: US)
  Receive Date: 20240404
  Receipt Date: 20240404
  Transmission Date: 20240716
  Serious: Yes (Other)
  Sender: FDA-Public Use
  Company Number: US-ENDO-CASE-0044233

PATIENT
  Sex: Male

DRUGS (1)
  1. COLLAGENASE CLOSTRIDIUM HISTOLYTICUM-AAES [Suspect]
     Active Substance: COLLAGENASE CLOSTRIDIUM HISTOLYTICUM-AAES

REACTIONS (3)
  - Pain [Unknown]
  - Ill-defined disorder [Unknown]
  - Anxiety [Unknown]
